FAERS Safety Report 18783560 (Version 3)
Quarter: 2021Q4

REPORT INFORMATION
  Report Type: Spontaneous
  Country: US (occurrence: US)
  Receive Date: 20210125
  Receipt Date: 20211022
  Transmission Date: 20220304
  Serious: Yes (Other)
  Sender: FDA-Public Use
  Company Number: US-PFIZER INC-2021035110

PATIENT
  Age: 75 Year
  Sex: Female
  Weight: 63.05 kg

DRUGS (1)
  1. GLIPIZIDE [Suspect]
     Active Substance: GLIPIZIDE
     Dosage: 2 TABLETS A DAY
     Dates: start: 2017, end: 201905

REACTIONS (17)
  - Hyperthyroidism [Unknown]
  - Diabetes mellitus [Unknown]
  - Drug hypersensitivity [Unknown]
  - Pain [Unknown]
  - Urinary incontinence [Unknown]
  - Urinary tract infection [Unknown]
  - Malaise [Unknown]
  - Vulvovaginal pain [Unknown]
  - Vaginal discharge [Unknown]
  - Stress [Unknown]
  - Fatigue [Unknown]
  - Limb injury [Unknown]
  - Hypertension [Unknown]
  - Blood cholesterol increased [Unknown]
  - Bladder disorder [Unknown]
  - Renal disorder [Unknown]
  - Wrong technique in product usage process [Unknown]
